FAERS Safety Report 8233156-3 (Version None)
Quarter: 2012Q1

REPORT INFORMATION
  Report Type: 
  Country: None (occurrence: None)
  Receive Date: 20120326
  Receipt Date: 20120315
  Transmission Date: 20120608
  Serious: No
  Sender: FDA-Public Use
  Company Number: US-PFIZER INC-2012068480

PATIENT
  Age: 51 Year
  Sex: Male

DRUGS (5)
  1. CRESTOR [Concomitant]
     Indication: BLOOD CHOLESTEROL INCREASED
     Dosage: UNK
     Route: 048
  2. LYRICA [Suspect]
     Indication: PAIN
     Dosage: 100 MG, 3X/DAY
     Route: 048
     Dates: start: 20120308
  3. COREG [Concomitant]
     Indication: HYPERTENSION
     Dosage: UNK
     Route: 048
  4. ANDROGEL [Concomitant]
     Dosage: UNK
     Route: 048
  5. LISINOPRIL [Concomitant]
     Indication: HYPERTENSION
     Dosage: UNK

REACTIONS (1)
  - GINGIVAL PAIN [None]
